FAERS Safety Report 25924524 (Version 1)
Quarter: 2025Q4

REPORT INFORMATION
  Report Type: Spontaneous
  Country: GB (occurrence: GB)
  Receive Date: 20251015
  Receipt Date: 20251015
  Transmission Date: 20260118
  Serious: Yes (Other)
  Sender: DR REDDYS
  Company Number: None

PATIENT
  Age: 81 Year
  Sex: Female
  Weight: 90 kg

DRUGS (29)
  1. PREGABALIN [Suspect]
     Active Substance: PREGABALIN
     Indication: Ill-defined disorder
     Dates: start: 20250512, end: 20251006
  2. CLARITHROMYCIN [Concomitant]
     Active Substance: CLARITHROMYCIN
     Indication: Ill-defined disorder
     Dosage: TAKE ONE EVERY 12 HRS
     Dates: start: 20250811, end: 20250818
  3. TRIMETHOPRIM [Concomitant]
     Active Substance: TRIMETHOPRIM
     Indication: Ill-defined disorder
     Dosage: ONE TABLET TWICE A DAY
     Dates: start: 20250827, end: 20250903
  4. NITROFURANTOIN [Concomitant]
     Active Substance: NITROFURANTOIN
     Indication: Ill-defined disorder
     Dosage: TAKE ONE TWICE DAILY
     Dates: start: 20250829, end: 20250901
  5. DOXYCYCLINE [Concomitant]
     Active Substance: DOXYCYCLINE
     Indication: Ill-defined disorder
     Dosage: TAKE TWO TABLETS A DAY
     Dates: start: 20251006
  6. KETOCONAZOLE [Concomitant]
     Active Substance: KETOCONAZOLE
     Indication: Ill-defined disorder
     Dosage: APPLY TWICE DAILY
     Dates: start: 20241203
  7. OTOMIZE [Concomitant]
     Indication: Ill-defined disorder
     Dosage: ONE SPRAY TO BE USED IN THE AFFECTED EAR(S) THR...
     Dates: start: 20230711
  8. POTASSIUM BICARBONATE\SODIUM ALGINATE [Concomitant]
     Active Substance: POTASSIUM BICARBONATE\SODIUM ALGINATE
     Indication: Ill-defined disorder
     Dosage: ONE OR TWO 5ML SPOONFULTS TO BE TAKEN AFTER MEA...
     Dates: start: 20240502
  9. ACETAMINOPHEN [Concomitant]
     Active Substance: ACETAMINOPHEN
     Indication: Ill-defined disorder
     Dosage: TAKE 2 TABLETS 4 TIMES DAILY FOR PAIN
     Dates: start: 20240502
  10. SHARPSGUARD [Concomitant]
     Indication: Ill-defined disorder
     Dosage: AS DIRECTED
     Dates: start: 20240502
  11. ATORVASTATIN [Concomitant]
     Active Substance: ATORVASTATIN
     Indication: Ill-defined disorder
     Dosage: TAKE ONE DAILY
     Dates: start: 20241211
  12. GLUCORX FINEPOINT ULTRA [Concomitant]
     Indication: Ill-defined disorder
     Dosage: AS DIRECTED
     Dates: start: 20241211
  13. GLUCORX [Concomitant]
     Indication: Ill-defined disorder
     Dosage: AS DIRECTED
     Dates: start: 20241211
  14. GLUCORX NEXUS [Concomitant]
     Indication: Ill-defined disorder
     Dosage: AS DIRECTED
     Dates: start: 20241211
  15. INSULIN HUMAN [Concomitant]
     Active Substance: INSULIN HUMAN
     Indication: Ill-defined disorder
     Dosage: FOR SUBCUTANEOUS INJECTION, ACCORDING TO REQUIR...
     Dates: start: 20241211
  16. BISOPROLOL [Concomitant]
     Active Substance: BISOPROLOL
     Indication: Ill-defined disorder
     Dosage: ONE TO BE TAKEN EACH DAY
     Dates: start: 20241211
  17. DERMOL [Concomitant]
     Active Substance: BENZALKONIUM CHLORIDE\CHLORHEXIDINE HYDROCHLORIDE\ISOPROPYL MYRISTATE\PARAFFIN
     Indication: Ill-defined disorder
     Dosage: USE AS DIRECTED
     Dates: start: 20241211
  18. LERCANIDIPINE HYDROCHLORIDE [Concomitant]
     Active Substance: LERCANIDIPINE HYDROCHLORIDE
     Indication: Ill-defined disorder
     Dosage: TAKE ONE DAILY
     Dates: start: 20241211
  19. LEVOTHYROXINE [Concomitant]
     Active Substance: LEVOTHYROXINE
     Indication: Ill-defined disorder
     Dosage: ONE TO BE TAKEN EACH MORNING AT LEAST 30 MINUTE...
     Dates: start: 20241211
  20. OMEPRAZOLE [Concomitant]
     Active Substance: OMEPRAZOLE
     Indication: Ill-defined disorder
     Dosage: ONE TO BE TAKEN EACH DAY
     Dates: start: 20241211
  21. PERINDOPRIL ERBUMINE [Concomitant]
     Active Substance: PERINDOPRIL ERBUMINE
     Indication: Ill-defined disorder
     Dosage: TAKE ONE DAILY
     Dates: start: 20241211
  22. FEXOFENADINE [Concomitant]
     Active Substance: FEXOFENADINE HYDROCHLORIDE
     Indication: Ill-defined disorder
     Dosage: TAKE ONE DAILY
     Dates: start: 20250417
  23. MEDI DERMA-S [Concomitant]
     Indication: Ill-defined disorder
     Dosage: APPLY MORNING AND NIGHT. LEAVE 15MINS BETWEEN A...
     Dates: start: 20250417
  24. HYDROCORTISONE [Concomitant]
     Active Substance: HYDROCORTISONE
     Indication: Ill-defined disorder
     Dosage: APPLY TWICE DAILY
     Dates: start: 20250427
  25. DIBUCAINE [Concomitant]
     Active Substance: DIBUCAINE
     Indication: Ill-defined disorder
     Dosage: APPLY TWICE DAILY
     Dates: start: 20250512
  26. ESTRIOL [Concomitant]
     Active Substance: ESTRIOL
     Indication: Ill-defined disorder
     Dosage: APPLY AT NIGHT FOR 2 WEEKS, THEN USE TWICE A WE...
     Dates: start: 20250512
  27. DIBUCAINE HYDROCHLORIDE\PREDNISOLONE [Concomitant]
     Active Substance: DIBUCAINE HYDROCHLORIDE\PREDNISOLONE
     Indication: Ill-defined disorder
     Dosage: INSERT ONE DAILY
     Dates: start: 20250512
  28. VENLAFAXINE [Concomitant]
     Active Substance: VENLAFAXINE HYDROCHLORIDE
     Indication: Ill-defined disorder
     Dosage: ONE TO BE TAKEN AT NIGHT
     Dates: start: 20250609
  29. ESTRADIOL HEMIHYDRATE [Concomitant]
     Active Substance: ESTRADIOL HEMIHYDRATE
     Indication: Ill-defined disorder
     Dosage: INSERT VAGINALLY.
     Dates: start: 20251006

REACTIONS (2)
  - Cognitive disorder [Recovered/Resolved]
  - Tremor [Recovered/Resolved]
